FAERS Safety Report 11756529 (Version 2)
Quarter: 2015Q4

REPORT INFORMATION
  Report Type: Spontaneous
  Country: US (occurrence: US)
  Receive Date: 20151119
  Receipt Date: 20151210
  Transmission Date: 20160304
  Serious: Yes (Death)
  Sender: FDA-Public Use
  Company Number: US-ROCHE-1663181

PATIENT
  Age: 80 Year
  Sex: Male
  Weight: 73.55 kg

DRUGS (1)
  1. ESBRIET [Suspect]
     Active Substance: PIRFENIDONE
     Indication: IDIOPATHIC PULMONARY FIBROSIS
     Route: 048
     Dates: start: 20150810

REACTIONS (2)
  - Pneumonia aspiration [Fatal]
  - Respiratory failure [Fatal]

NARRATIVE: CASE EVENT DATE: 20151113
